FAERS Safety Report 13180815 (Version 1)
Quarter: 2017Q1

REPORT INFORMATION
  Report Type: Spontaneous
  Country: US (occurrence: US)
  Receive Date: 20170202
  Receipt Date: 20170202
  Transmission Date: 20170428
  Serious: No
  Sender: FDA-Public Use
  Company Number: US-SMITH AND NEPHEW, INC-2016SMT00464

PATIENT
  Age: 72 Year
  Sex: Female
  Weight: 97.51 kg

DRUGS (5)
  1. ATORVASTATIN (UNKNOWN MANUFACTURER) [Suspect]
     Active Substance: ATORVASTATIN
     Dosage: UNK
     Dates: end: 2016
  2. REGRANEX [Suspect]
     Active Substance: BECAPLERMIN
     Indication: DIABETIC ULCER
     Dosage: UNK, 1X/DAY
     Dates: start: 20160513
  3. ALLOPURINOL. [Concomitant]
     Active Substance: ALLOPURINOL
  4. OMEPRAZOLE. [Concomitant]
     Active Substance: OMEPRAZOLE
  5. UNSPECIFIED INSULIN [Concomitant]
     Active Substance: INSULIN NOS

REACTIONS (1)
  - Arthralgia [Recovered/Resolved]

NARRATIVE: CASE EVENT DATE: 201605
